FAERS Safety Report 8216874-2 (Version None)
Quarter: 2012Q1

REPORT INFORMATION
  Report Type: 
  Country: None (occurrence: None)
  Receive Date: 20120316
  Receipt Date: 20120312
  Transmission Date: 20120608
  Serious: Yes (Life-Threatening, Other)
  Sender: FDA-Public Use
  Company Number: US-ASTRAZENECA-2011SE77887

PATIENT
  Age: 41 Year
  Sex: Female
  Weight: 81.6 kg

DRUGS (15)
  1. SEROQUEL [Suspect]
     Indication: DEPRESSION
     Route: 048
     Dates: start: 20110728
  2. SEROQUEL [Suspect]
     Indication: MAJOR DEPRESSION
     Route: 048
     Dates: start: 20110728
  3. SEROQUEL [Suspect]
     Route: 048
     Dates: start: 20110620, end: 20110728
  4. PARNATE [Suspect]
     Route: 048
     Dates: start: 20110801
  5. PARNATE [Suspect]
     Indication: DEPRESSION
     Route: 048
     Dates: start: 20101230
  6. PARNATE [Suspect]
     Route: 048
     Dates: start: 20110801
  7. KLONOPIN [Concomitant]
     Indication: ANXIETY
     Route: 048
     Dates: start: 20070601
  8. ANTIDEPRESSANTS [Concomitant]
  9. SEROQUEL [Suspect]
     Route: 048
  10. SEROQUEL [Suspect]
     Route: 048
     Dates: start: 20070501, end: 20100301
  11. SEROQUEL [Suspect]
     Route: 048
  12. LITHIUM CARBONATE [Concomitant]
     Indication: DEPRESSION
     Route: 048
     Dates: start: 20091201
  13. SEROQUEL [Suspect]
     Route: 048
     Dates: start: 20110620, end: 20110728
  14. SEROQUEL [Suspect]
     Route: 048
     Dates: start: 20070501, end: 20100301
  15. PARNATE [Suspect]
     Indication: MAJOR DEPRESSION
     Route: 048
     Dates: start: 20101230

REACTIONS (14)
  - DYSARTHRIA [None]
  - NEUROLEPTIC MALIGNANT SYNDROME [None]
  - OVERDOSE [None]
  - GAIT DISTURBANCE [None]
  - HYPERTHERMIA MALIGNANT [None]
  - FEELING ABNORMAL [None]
  - SEROTONIN SYNDROME [None]
  - SEDATION [None]
  - EPILEPSY [None]
  - WITHDRAWAL SYNDROME [None]
  - COORDINATION ABNORMAL [None]
  - ALCOHOL POISONING [None]
  - CONVULSION [None]
  - MENTAL STATUS CHANGES [None]
